FAERS Safety Report 8619412-5 (Version None)
Quarter: 2012Q3

REPORT INFORMATION
  Report Type: 
  Country: None (occurrence: None)
  Receive Date: 20120824
  Receipt Date: 20120822
  Transmission Date: 20120928
  Serious: Yes (Other)
  Sender: FDA-Public Use
  Company Number: CN-PFIZER INC-2012206679

PATIENT
  Age: 90 Year
  Sex: Female
  Weight: 50 kg

DRUGS (3)
  1. AMBROXOL [Concomitant]
     Indication: PRODUCTIVE COUGH
     Dosage: UNK
  2. PIPERACILLIN/TAZOBACTAM [Suspect]
     Dosage: 4.5 G, THRICE DAILY
     Route: 041
     Dates: start: 20100419, end: 20100419
  3. CEFOPERAZONE SODIUM/SULBACTAM SODIUM [Concomitant]
     Indication: INFLAMMATION
     Dosage: UNK
     Dates: start: 20100416

REACTIONS (4)
  - BREATH SOUNDS ABNORMAL [None]
  - CYANOSIS [None]
  - FEELING COLD [None]
  - DEPRESSED MOOD [None]
